FAERS Safety Report 17143521 (Version 1)
Quarter: 2019Q4

REPORT INFORMATION
  Report Type: Spontaneous
  Country: CN (occurrence: CN)
  Receive Date: 20191212
  Receipt Date: 20191212
  Transmission Date: 20200122
  Serious: Yes (Other)
  Sender: FDA-Public Use
  Company Number: CN-PFIZER INC-2019531275

PATIENT
  Age: 56 Year
  Sex: Male
  Weight: 85 kg

DRUGS (2)
  1. ZOLOFT [Suspect]
     Active Substance: SERTRALINE HYDROCHLORIDE
     Indication: THERAPEUTIC PROCEDURE
     Dosage: 50 MG, 1X/DAY
     Route: 048
     Dates: start: 20191020, end: 20191022
  2. ZOLOFT [Suspect]
     Active Substance: SERTRALINE HYDROCHLORIDE
     Dosage: 50 MG, UNK
     Route: 048
     Dates: start: 20191024

REACTIONS (5)
  - Hypokalaemia [Unknown]
  - Hypertension [Recovering/Resolving]
  - Palpitations [Unknown]
  - Hyperhidrosis [Unknown]
  - Primary hyperaldosteronism [Unknown]

NARRATIVE: CASE EVENT DATE: 20191020
